FAERS Safety Report 9325730 (Version 1)
Quarter: 2013Q2

REPORT INFORMATION
  Report Type: Spontaneous
  Country: ES (occurrence: ES)
  Receive Date: 20130604
  Receipt Date: 20130604
  Transmission Date: 20140414
  Serious: Yes (Hospitalization)
  Sender: FDA-Public Use
  Company Number: ES-ROCHE-1231685

PATIENT
  Age: 57 Year
  Sex: Female

DRUGS (5)
  1. XELODA [Suspect]
     Indication: COLON CANCER
     Route: 048
     Dates: start: 20121016, end: 20121021
  2. LORMETAZEPAM [Concomitant]
     Route: 048
  3. FORTASEC [Concomitant]
     Route: 048
  4. ORFIDAL [Concomitant]
     Route: 048
  5. PRIMPERAN (SPAIN) [Concomitant]
     Route: 048

REACTIONS (2)
  - Pericardial effusion [Recovered/Resolved]
  - Pericarditis [Recovered/Resolved]
